FAERS Safety Report 6934247-7 (Version None)
Quarter: 2010Q3

REPORT INFORMATION
  Report Type: 
  Country: None (occurrence: None)
  Receive Date: 20100820
  Receipt Date: 20100812
  Transmission Date: 20110219
  Serious: Yes (Other)
  Sender: FDA-Public Use
  Company Number: JP-JNJFOC-20100804395

PATIENT
  Sex: Male

DRUGS (4)
  1. TYLENOL A GELCAPS [Suspect]
     Indication: OROPHARYNGEAL PAIN
     Route: 048
  2. TYLENOL A GELCAPS [Suspect]
     Indication: PYREXIA
     Route: 048
  3. ALL OTHER THERAPEUTIC PRODUCT [Concomitant]
  4. BLOOD PRESSURE MEDICATION NOS [Concomitant]
     Indication: HYPERTENSION
     Route: 065

REACTIONS (2)
  - RASH [None]
  - RASH GENERALISED [None]
